FAERS Safety Report 4353725-0 (Version None)
Quarter: 2004Q2

REPORT INFORMATION
  Report Type: 
  Country: None (occurrence: None)
  Receive Date: 20040430
  Receipt Date: 20040113
  Transmission Date: 20050107
  Serious: Yes (Other)
  Sender: FDA-Public Use
  Company Number: 204142

PATIENT

DRUGS (1)
  1. XOLAIR [Suspect]

REACTIONS (1)
  - LUNG NEOPLASM MALIGNANT [None]
